FAERS Safety Report 20753654 (Version 1)
Quarter: 2022Q2

REPORT INFORMATION
  Report Type: Spontaneous
  Country: US (occurrence: None)
  Receive Date: 20220426
  Receipt Date: 20220426
  Transmission Date: 20220720
  Serious: No
  Sender: FDA-Public Use
  Company Number: US-ROCHE-2950522

PATIENT
  Sex: Female

DRUGS (2)
  1. ESBRIET [Suspect]
     Active Substance: PIRFENIDONE
     Indication: Pulmonary fibrosis
     Dosage: 1 CAPSULE THREE TIMES A DAY FOR 7 DAYS, THEN 2 CAPSULES THREE TIMES A DAY FOR 7 DAYS, THEREAFTER 3 C
     Route: 048
     Dates: start: 202108
  2. OFEV [Concomitant]
     Active Substance: NINTEDANIB
     Dosage: LAST SHIPPED IN JUN/2021

REACTIONS (1)
  - Urinary tract infection [Recovered/Resolved]
